FAERS Safety Report 12048115 (Version 1)
Quarter: 2016Q1

REPORT INFORMATION
  Report Type: Spontaneous
  Country: US (occurrence: US)
  Receive Date: 20160209
  Receipt Date: 20160209
  Transmission Date: 20160526
  Serious: Yes (Hospitalization, Other)
  Sender: FDA-Public Use
  Company Number: US-HOSPIRA-3159956

PATIENT
  Age: 71 Year
  Sex: Female
  Weight: 63.95 kg

DRUGS (9)
  1. INVESTIGATIONAL DRUG [Suspect]
     Active Substance: INVESTIGATIONAL PRODUCT
     Indication: PANCREATIC CARCINOMA
     Route: 048
     Dates: start: 20150902, end: 20151004
  2. CAMPTOSAR [Suspect]
     Active Substance: IRINOTECAN HYDROCHLORIDE
     Indication: PANCREATIC CARCINOMA
     Route: 042
     Dates: start: 20151026, end: 20151107
  3. FLUOROURACIL. [Suspect]
     Active Substance: FLUOROURACIL
     Indication: PANCREATIC CARCINOMA
     Route: 042
     Dates: start: 20151026, end: 20151107
  4. FUSILEV [Suspect]
     Active Substance: LEVOLEUCOVORIN CALCIUM
     Indication: PANCREATIC CARCINOMA
     Route: 042
     Dates: start: 20151026, end: 20151107
  5. INVESTIGATIONAL DRUG [Suspect]
     Active Substance: INVESTIGATIONAL PRODUCT
     Indication: PANCREATIC CARCINOMA
     Route: 048
     Dates: start: 20150902, end: 20151004
  6. OXALIPLATIN. [Suspect]
     Active Substance: OXALIPLATIN
     Indication: PANCREATIC CARCINOMA
     Route: 042
     Dates: start: 20151026, end: 20151107
  7. CAPECITABINE. [Suspect]
     Active Substance: CAPECITABINE
     Indication: PANCREATIC CARCINOMA
     Route: 048
     Dates: start: 20150902, end: 20151004
  8. CAPECITABINE. [Suspect]
     Active Substance: CAPECITABINE
     Indication: PANCREATIC CARCINOMA
     Route: 048
     Dates: start: 20150902, end: 20151004
  9. FLUOROURACIL. [Suspect]
     Active Substance: FLUOROURACIL
     Indication: PANCREATIC CARCINOMA
     Route: 042
     Dates: start: 20151026, end: 20151107

REACTIONS (2)
  - Febrile neutropenia [Recovered/Resolved]
  - Tachycardia [Unknown]

NARRATIVE: CASE EVENT DATE: 20151107
